FAERS Safety Report 11519728 (Version 1)
Quarter: 2015Q3

REPORT INFORMATION
  Report Type: Spontaneous
  Country: BR (occurrence: BR)
  Receive Date: 20150918
  Receipt Date: 20150918
  Transmission Date: 20151125
  Serious: Yes (Other)
  Sender: FDA-Public Use
  Company Number: BR-AMGEN-BRASP2013016308

PATIENT
  Age: 38 Year
  Sex: Male
  Weight: 106 kg

DRUGS (4)
  1. ENBREL [Suspect]
     Active Substance: ETANERCEPT
     Indication: ANKYLOSING SPONDYLITIS
     Dosage: 50 MG, ONCE WEEKLY
     Route: 058
     Dates: start: 201212, end: 201406
  2. DICLOFENAC POTASSIUM. [Concomitant]
     Active Substance: DICLOFENAC POTASSIUM
     Dosage: UNSPECIFIED DOSE, SOMETIMES
  3. DICLOFENAC SODIUM. [Concomitant]
     Active Substance: DICLOFENAC SODIUM
     Indication: PAIN
     Dosage: WHEN FEELING PAIN
  4. DICLOFENAC SODIUM. [Concomitant]
     Active Substance: DICLOFENAC SODIUM
     Dosage: UNSPECIFIED DOSE, SOMETIMES

REACTIONS (6)
  - Therapeutic response decreased [Unknown]
  - Malaise [Unknown]
  - Urinary retention [Unknown]
  - Cold sweat [Unknown]
  - Pain [Unknown]
  - Renal impairment [Unknown]
